FAERS Safety Report 4335254-3 (Version None)
Quarter: 2004Q2

REPORT INFORMATION
  Report Type: 
  Country: None (occurrence: None)
  Receive Date: 20040408
  Receipt Date: 20040311
  Transmission Date: 20050107
  Serious: Yes (Hospitalization)
  Sender: FDA-Public Use
  Company Number: US-MERCK-0403USA01187

PATIENT
  Age: 65 Year
  Sex: Female

DRUGS (5)
  1. FOSAMAX [Suspect]
     Indication: OSTEOPOROSIS
     Route: 048
     Dates: start: 20031029, end: 20040301
  2. ASPIRIN [Concomitant]
     Route: 065
  3. HYDROCHLOROTHIAZIDE AND TRIAMTERENE [Concomitant]
     Route: 065
  4. NAPROSYN [Concomitant]
     Route: 065
  5. RISPERDAL [Concomitant]
     Route: 065

REACTIONS (2)
  - GASTRIC ULCER [None]
  - OESOPHAGEAL HAEMORRHAGE [None]
